FAERS Safety Report 15020686 (Version 2)
Quarter: 2018Q3

REPORT INFORMATION
  Report Type: Report from Study
  Country: US (occurrence: US)
  Receive Date: 20180618
  Receipt Date: 20180808
  Transmission Date: 20181010
  Serious: Yes (Death)
  Sender: FDA-Public Use
  Company Number: PHEH2018US024010

PATIENT
  Sex: Female
  Weight: 69.1 kg

DRUGS (1)
  1. JADENU [Suspect]
     Active Substance: DEFERASIROX
     Indication: HAEMOCHROMATOSIS
     Dosage: UNK, TID
     Route: 048
     Dates: start: 201801, end: 201806

REACTIONS (1)
  - Death [Fatal]
